FAERS Safety Report 4592529-0 (Version None)
Quarter: 2005Q2

REPORT INFORMATION
  Report Type: 
  Country: None (occurrence: None)
  Receive Date: 20050222
  Receipt Date: 20050210
  Transmission Date: 20051028
  Serious: Yes (Other)
  Sender: FDA-Public Use
  Company Number: FEI2005-0251

PATIENT
  Age: 39 Year
  Sex: Female

DRUGS (1)
  1. INTRAUTERINE COPPER CONTRACEPTIVE [Suspect]
     Indication: CONTRACEPTION
     Dosage: INTRA-UTERINE
     Route: 015
     Dates: start: 20040301, end: 20040801

REACTIONS (2)
  - CERVICAL DYSPLASIA [None]
  - UTERINE POLYP [None]
